FAERS Safety Report 11399328 (Version 1)
Quarter: 2015Q3

REPORT INFORMATION
  Report Type: Report from Study
  Country: BR (occurrence: BR)
  Receive Date: 20150820
  Receipt Date: 20150820
  Transmission Date: 20151125
  Serious: Yes (Hospitalization, Other)
  Sender: FDA-Public Use
  Company Number: US-ASTRAZENECA-2015SE70961

PATIENT
  Age: 6 Month
  Sex: Male
  Weight: 4.1 kg

DRUGS (9)
  1. MULTIVITAMIN [Concomitant]
     Active Substance: VITAMINS
     Indication: VITAMIN SUPPLEMENTATION
     Route: 048
     Dates: start: 201505
  2. FERROUS SULFATE [Concomitant]
     Active Substance: FERROUS SULFATE\FERROUS SULFATE, DRIED
     Indication: ANAEMIA
     Route: 048
     Dates: start: 201505
  3. SILDENAFIL. [Concomitant]
     Active Substance: SILDENAFIL
     Indication: LUNG DISORDER
  4. SILDENAFIL. [Concomitant]
     Active Substance: SILDENAFIL
     Indication: ARRHYTHMIA
     Route: 042
  5. SYNAGIS [Suspect]
     Active Substance: PALIVIZUMAB
     Indication: BRONCHOPULMONARY DYSPLASIA
     Route: 030
     Dates: start: 20150506, end: 20150506
  6. SYNAGIS [Suspect]
     Active Substance: PALIVIZUMAB
     Indication: BRONCHOPULMONARY DYSPLASIA
     Route: 030
     Dates: start: 20150508
  7. RANITIDINE [Concomitant]
     Active Substance: RANITIDINE\RANITIDINE HYDROCHLORIDE
     Indication: GASTRIC DISORDER
     Route: 048
     Dates: start: 201507
  8. SILDENAFIL. [Concomitant]
     Active Substance: SILDENAFIL
     Indication: ARRHYTHMIA
  9. SILDENAFIL. [Concomitant]
     Active Substance: SILDENAFIL
     Indication: LUNG DISORDER
     Route: 042

REACTIONS (3)
  - Nosocomial infection [Recovered/Resolved]
  - Pneumonia [Recovered/Resolved]
  - Arrhythmia [Not Recovered/Not Resolved]

NARRATIVE: CASE EVENT DATE: 20150630
